FAERS Safety Report 10624969 (Version 1)
Quarter: 2014Q4

REPORT INFORMATION
  Report Type: Spontaneous
  Country: SA (occurrence: None)
  Receive Date: 20141202
  Receipt Date: 20141202
  Transmission Date: 20150529
  Serious: Yes (Hospitalization)
  Sender: FDA-Public Use
  Company Number: IR-DEXPHARM-20140932

PATIENT
  Age: 39 Year
  Sex: Female

DRUGS (3)
  1. DICLOFENAC [Suspect]
     Active Substance: DICLOFENAC
     Indication: FLANK PAIN
     Route: 030
  2. METFORMIN [Concomitant]
     Active Substance: METFORMIN HYDROCHLORIDE
  3. GLIBENCLAMIDE [Concomitant]
     Active Substance: GLYBURIDE

REACTIONS (12)
  - Bacteriuria [None]
  - Hydronephrosis [None]
  - Arthralgia [None]
  - Pyelonephritis [None]
  - Osteonecrosis [None]
  - Urinary tract infection [None]
  - Pleural effusion [None]
  - Tachycardia [None]
  - Necrotising fasciitis [None]
  - Platelet count decreased [None]
  - Abscess [None]
  - Musculoskeletal pain [None]
